FAERS Safety Report 20427629 (Version 1)
Quarter: 2022Q1

REPORT INFORMATION
  Report Type: Spontaneous
  Country: US (occurrence: US)
  Receive Date: 20220204
  Receipt Date: 20220204
  Transmission Date: 20220423
  Serious: Yes (Disabling)
  Sender: FDA-Public Use
  Company Number: US-009507513-1807USA008697

PATIENT
  Sex: Female

DRUGS (5)
  1. COZAAR [Suspect]
     Active Substance: LOSARTAN POTASSIUM
     Indication: Hypertension
     Dosage: TAKE 1 TAB A DAY
     Route: 048
     Dates: start: 2012, end: 20200815
  2. ZOSTAVAX [Suspect]
     Active Substance: VARICELLA-ZOSTER VIRUS STRAIN OKA/MERCK LIVE ANTIGEN
     Indication: Prophylaxis
     Dosage: UNK
     Route: 065
     Dates: start: 20110818, end: 2011
  3. ZOSTAVAX [Suspect]
     Active Substance: VARICELLA-ZOSTER VIRUS STRAIN OKA/MERCK LIVE ANTIGEN
     Indication: Routine health maintenance
     Dosage: UNK
  4. IMIPRAMINE [Concomitant]
     Active Substance: IMIPRAMINE
     Indication: Cystitis interstitial
     Dosage: TAKE 1 TAB ONCE A DAY
     Route: 048
     Dates: start: 2009
  5. AMITRIPTYLINE HYDROCHLORIDE [Concomitant]
     Active Substance: AMITRIPTYLINE HYDROCHLORIDE
     Indication: Cystitis interstitial
     Dosage: TAKE 1 TAB ONCE A DAY
     Route: 048
     Dates: start: 2009

REACTIONS (9)
  - Visual impairment [Unknown]
  - Vaccination failure [Unknown]
  - Trigger finger [Unknown]
  - Blood cholesterol increased [Not Recovered/Not Resolved]
  - Sleep disorder [Not Recovered/Not Resolved]
  - Goitre [Unknown]
  - Herpes zoster [Not Recovered/Not Resolved]
  - Herpes simplex [Unknown]
  - Fluid retention [Unknown]

NARRATIVE: CASE EVENT DATE: 20110101
